FAERS Safety Report 9707104 (Version 1)
Quarter: 2013Q4

REPORT INFORMATION
  Report Type: Spontaneous
  Country: CN (occurrence: CN)
  Receive Date: 20131125
  Receipt Date: 20131125
  Transmission Date: 20140711
  Serious: Yes (Death, Other)
  Sender: FDA-Public Use
  Company Number: CN-JNJFOC-20131106371

PATIENT
  Sex: 0

DRUGS (1)
  1. ITRACONAZOLE [Suspect]
     Indication: BRONCHOPULMONARY ASPERGILLOSIS
     Dosage: LOADING DOSE OF 200MG ONCE PER 12 HOURS, BID; THIRD DAY: MAINTENANCE DOSE OF 200 MG, QD
     Route: 041

REACTIONS (2)
  - Death [Fatal]
  - Aspergillus infection [Unknown]
